FAERS Safety Report 14459911 (Version 1)
Quarter: 2018Q1

REPORT INFORMATION
  Report Type: Spontaneous
  Country: US (occurrence: US)
  Receive Date: 20180129
  Receipt Date: 20180129
  Transmission Date: 20180509
  Serious: Yes (Life-Threatening, Hospitalization)
  Sender: FDA-Public Use
  Company Number: None

PATIENT
  Sex: Male
  Weight: 112.05 kg

DRUGS (5)
  1. ALEVE [Suspect]
     Active Substance: NAPROXEN SODIUM
     Indication: HEADACHE
     Dosage: ?          QUANTITY:24 CAPSULE(S);?AS NEEDED ORAL
     Route: 048
     Dates: start: 20080101, end: 20180123
  2. ALEVE [Suspect]
     Active Substance: NAPROXEN SODIUM
     Indication: TOOTHACHE
     Dosage: ?          QUANTITY:24 CAPSULE(S);?AS NEEDED ORAL
     Route: 048
     Dates: start: 20080101, end: 20180123
  3. PANTOPRAZOLE [Concomitant]
     Active Substance: PANTOPRAZOLE
  4. ALEVE [Suspect]
     Active Substance: NAPROXEN SODIUM
     Indication: BACK PAIN
     Dosage: ?          QUANTITY:24 CAPSULE(S);?AS NEEDED ORAL
     Route: 048
     Dates: start: 20080101, end: 20180123
  5. ALEVE [Suspect]
     Active Substance: NAPROXEN SODIUM
     Indication: NASOPHARYNGITIS
     Dosage: ?          QUANTITY:24 CAPSULE(S);?AS NEEDED ORAL
     Route: 048
     Dates: start: 20080101, end: 20180123

REACTIONS (1)
  - Gastric ulcer haemorrhage [None]

NARRATIVE: CASE EVENT DATE: 20180124
